FAERS Safety Report 9406235 (Version 1)
Quarter: 2013Q3

REPORT INFORMATION
  Report Type: Spontaneous
  Country: US (occurrence: US)
  Receive Date: 20130717
  Receipt Date: 20130717
  Transmission Date: 20140515
  Serious: No
  Sender: FDA-Public Use
  Company Number: US-009507513-1307USA005279

PATIENT
  Sex: Female

DRUGS (6)
  1. DULERA [Suspect]
     Indication: ASTHMA
     Dosage: UNK
     Route: 055
     Dates: start: 201304
  2. ADVAIR [Suspect]
     Indication: ASTHMA
     Dosage: POWDER INHALER, 1 PUFF TWICE PER DAY
     Route: 055
     Dates: start: 2010
  3. ADVAIR [Suspect]
     Indication: ASTHMA
     Dosage: HFA FREE INHALER, 2 PUFFS TWICE PER DAY
  4. PRILOSEC [Concomitant]
  5. CLARITIN [Concomitant]
  6. ESTRADIOL [Concomitant]

REACTIONS (3)
  - Oesophageal candidiasis [Recovered/Resolved]
  - Arthralgia [Recovering/Resolving]
  - Gait disturbance [Unknown]
